FAERS Safety Report 8400092-9 (Version None)
Quarter: 2012Q2

REPORT INFORMATION
  Report Type: 
  Country: None (occurrence: None)
  Receive Date: 20120531
  Receipt Date: 20120525
  Transmission Date: 20120825
  Serious: Yes (Hospitalization)
  Sender: FDA-Public Use
  Company Number: JP-PFIZER INC-2012066660

PATIENT
  Age: 73 Year
  Sex: Female
  Weight: 57 kg

DRUGS (5)
  1. LEVOFLOXACIN [Concomitant]
     Indication: TUBERCULOSIS
     Dosage: 400 MG, 3X/WEEK
     Route: 048
     Dates: start: 20111109
  2. MYCOBUTIN [Suspect]
     Indication: TUBERCULOSIS
     Dosage: 150 MG, 1X/DAY
     Route: 048
     Dates: start: 20120316, end: 20120406
  3. MYCOBUTIN [Suspect]
     Dosage: 100 MG, 1X/DAY
     Route: 048
     Dates: start: 20120407
  4. PYRAZINAMIDE [Concomitant]
     Indication: TUBERCULOSIS
     Dosage: 1.2 G, 3X/WEEK
     Route: 048
     Dates: start: 20111109
  5. ETHAMBUTOL HYDROCHLORIDE [Concomitant]
     Indication: TUBERCULOSIS
     Dosage: 500 MG, 3X/WEEK
     Route: 048
     Dates: start: 20111109

REACTIONS (1)
  - PLATELET COUNT DECREASED [None]
